FAERS Safety Report 13425768 (Version 2)
Quarter: 2017Q3

REPORT INFORMATION
  Report Type: Spontaneous
  Country: US (occurrence: US)
  Receive Date: 20170411
  Receipt Date: 20170706
  Transmission Date: 20171127
  Serious: Yes (Hospitalization)
  Sender: FDA-Public Use
  Company Number: US-JNJFOC-20170311949

PATIENT
  Age: 20 Year
  Sex: Female
  Weight: 63.78 kg

DRUGS (11)
  1. REMICADE [Suspect]
     Active Substance: INFLIXIMAB
     Indication: CROHN^S DISEASE
     Dosage: DOSE: 400 MG
     Route: 042
     Dates: start: 20160705
  2. DICYCLOMINE HCL [Concomitant]
     Active Substance: DICYCLOMINE HYDROCHLORIDE
     Indication: MUSCLE SPASMS
     Route: 065
     Dates: start: 20160615
  3. REMICADE [Suspect]
     Active Substance: INFLIXIMAB
     Indication: CROHN^S DISEASE
     Dosage: DOSE: 400 MG
     Route: 042
     Dates: start: 20161223, end: 20170217
  4. METOCLOPRAMIDE. [Concomitant]
     Active Substance: METOCLOPRAMIDE
     Route: 048
     Dates: start: 20161027
  5. ENTOCORT [Concomitant]
     Active Substance: BUDESONIDE
     Route: 065
  6. ZYRTEC [Concomitant]
     Active Substance: CETIRIZINE HYDROCHLORIDE
     Indication: PREMEDICATION
     Route: 048
     Dates: start: 20170217
  7. MARLISSA [Concomitant]
     Active Substance: ETHINYL ESTRADIOL\LEVONORGESTREL
     Indication: CONTRACEPTION
     Route: 065
     Dates: start: 20170306
  8. PANTOPRAZOLE SODIUM. [Concomitant]
     Active Substance: PANTOPRAZOLE SODIUM
     Route: 048
     Dates: start: 20160407
  9. REMICADE [Suspect]
     Active Substance: INFLIXIMAB
     Indication: CROHN^S DISEASE
     Route: 042
     Dates: start: 20160714
  10. ZOFRAN [Concomitant]
     Active Substance: ONDANSETRON HYDROCHLORIDE
     Indication: NAUSEA
     Route: 048
     Dates: start: 20160615
  11. TYLENOL [Concomitant]
     Active Substance: ACETAMINOPHEN
     Indication: PREMEDICATION
     Route: 048
     Dates: start: 20170217

REACTIONS (10)
  - Crohn^s disease [Unknown]
  - Drug hypersensitivity [Unknown]
  - Pain [Unknown]
  - Post-traumatic neck syndrome [Unknown]
  - Somnolence [Unknown]
  - Back pain [Unknown]
  - Autoimmune hepatitis [Recovered/Resolved]
  - Oral herpes [Unknown]
  - Infusion related reaction [Unknown]
  - Road traffic accident [Unknown]

NARRATIVE: CASE EVENT DATE: 20170217
